FAERS Safety Report 9514255 (Version 2)
Quarter: 2014Q1

REPORT INFORMATION
  Report Type: Spontaneous
  Country: US (occurrence: US)
  Receive Date: 20130910
  Receipt Date: 20140206
  Transmission Date: 20141002
  Serious: Yes (Other)
  Sender: FDA-Public Use
  Company Number: US-009507513-1309USA002048

PATIENT
  Sex: Female

DRUGS (3)
  1. REMERON [Suspect]
     Indication: DEPRESSION
     Dosage: UNK
     Route: 048
     Dates: start: 2000
  2. PAXIL [Suspect]
  3. CYMBALTA [Suspect]

REACTIONS (3)
  - Serotonin syndrome [Not Recovered/Not Resolved]
  - Parkinsonism [Not Recovered/Not Resolved]
  - Drug ineffective [Not Recovered/Not Resolved]
